FAERS Safety Report 4607000-7 (Version None)
Quarter: 2005Q1

REPORT INFORMATION
  Report Type: 
  Country: None (occurrence: None)
  Receive Date: 20050309
  Receipt Date: 20050224
  Transmission Date: 20050727
  Serious: Yes (Hospitalization)
  Sender: FDA-Public Use
  Company Number: HQWYE290830DEC04

PATIENT
  Age: 66 Year
  Sex: Male
  Weight: 128.94 kg

DRUGS (14)
  1. RAPAMUNE [Suspect]
     Indication: PROPHYLAXIS AGAINST TRANSPLANT REJECTION
     Dosage: 4 MG 1X PER 1 DAY
     Dates: start: 20021018
  2. BACTRIM DS [Concomitant]
  3. LASIX [Concomitant]
  4. MULTIVITAMINS (ASCORBIC ACID/ERGOCALCIFEROL/FOLIC ACID/NICOTINAMIDE/PA [Concomitant]
  5. PREDNISONE [Concomitant]
  6. SOTALOL HCL [Concomitant]
  7. GLYBURIDE [Concomitant]
  8. AZATHIOPRINE [Concomitant]
  9. SYNTHROID [Concomitant]
  10. DIGOXIN [Concomitant]
  11. ASPIRIN [Concomitant]
  12. AVAPRO [Concomitant]
  13. NOVOLIN R [Concomitant]
  14. NEURONTIN [Concomitant]

REACTIONS (3)
  - ATELECTASIS [None]
  - DIABETIC FOOT [None]
  - DILATATION VENTRICULAR [None]
